FAERS Safety Report 7445332-8 (Version None)
Quarter: 2011Q2

REPORT INFORMATION
  Report Type: 
  Country: None (occurrence: None)
  Receive Date: 20110429
  Receipt Date: 20100830
  Transmission Date: 20111010
  Serious: No
  Sender: FDA-Public Use
  Company Number: A0879137A

PATIENT
  Sex: Male

DRUGS (1)
  1. ZOFRAN [Suspect]
     Indication: NAUSEA

REACTIONS (4)
  - NAUSEA [None]
  - FLATULENCE [None]
  - CONSTIPATION [None]
  - ABDOMINAL DISCOMFORT [None]
